FAERS Safety Report 5504936-X (Version None)
Quarter: 2007Q4

REPORT INFORMATION
  Report Type: 
  Country: None (occurrence: None)
  Receive Date: 20071102
  Receipt Date: 20071023
  Transmission Date: 20080405
  Serious: Yes (Other)
  Sender: FDA-Public Use
  Company Number: US-JNJFOC-20071001189

PATIENT
  Sex: Male
  Weight: 76.2 kg

DRUGS (4)
  1. REMICADE [Suspect]
     Indication: RHEUMATOID ARTHRITIS
     Dosage: APPROX 22 INFUSIONS RECEIVED
     Route: 042
  2. METHOTREXATE [Suspect]
     Indication: RHEUMATOID ARTHRITIS
     Dosage: FOR GREATER THAN 10 YEARS
  3. PREDNISONE [Concomitant]
  4. IBUPROFEN [Concomitant]

REACTIONS (1)
  - NON-HODGKIN'S LYMPHOMA [None]
